FAERS Safety Report 13082446 (Version 2)
Quarter: 2021Q3

REPORT INFORMATION
  Report Type: Report from Study
  Country: US (occurrence: US)
  Receive Date: 20170103
  Receipt Date: 20210914
  Transmission Date: 20211014
  Serious: Yes (Hospitalization)
  Sender: FDA-Public Use
  Company Number: US-CELGENEUS-USA-2016127177

PATIENT
  Age: 50 Year
  Sex: Male
  Weight: 112.6 kg

DRUGS (7)
  1. MELPHALAN. [Suspect]
     Active Substance: MELPHALAN
     Indication: PLASMA CELL MYELOMA
     Dosage: 432
     Route: 041
     Dates: start: 20110419, end: 20110419
  2. REVLIMID [Suspect]
     Active Substance: LENALIDOMIDE
     Dosage: 25 MILLIGRAM
     Route: 048
     Dates: start: 20160501
  3. REVLIMID [Suspect]
     Active Substance: LENALIDOMIDE
     Indication: PLASMA CELL MYELOMA
     Dosage: 25 MILLIGRAM
     Route: 048
     Dates: start: 20101122, end: 20110306
  4. NEUPOGEN [Suspect]
     Active Substance: FILGRASTIM
     Dosage: 2100 MICROGRAM
     Route: 058
     Dates: start: 20110316, end: 20110318
  5. NEULASTA [Suspect]
     Active Substance: PEGFILGRASTIM
     Indication: PLASMA CELL MYELOMA
     Route: 058
     Dates: start: 20110423, end: 20110423
  6. NEUPOGEN [Suspect]
     Active Substance: FILGRASTIM
     Dosage: 2100 MICROGRAM
     Route: 058
     Dates: start: 20110401, end: 20110406
  7. NEUPOGEN [Suspect]
     Active Substance: FILGRASTIM
     Indication: PLASMA CELL MYELOMA
     Dosage: 1560 MICROGRAM
     Route: 058
     Dates: start: 20110312, end: 20110315

REACTIONS (1)
  - Atrial fibrillation [Recovered/Resolved]

NARRATIVE: CASE EVENT DATE: 20110505
